FAERS Safety Report 18695654 (Version 1)
Quarter: 2021Q1

REPORT INFORMATION
  Report Type: Report from Study
  Country: GB (occurrence: GB)
  Receive Date: 20210104
  Receipt Date: 20210104
  Transmission Date: 20210419
  Serious: Yes (Other)
  Sender: FDA-Public Use
  Company Number: GB-SAMSUNG BIOEPIS-SB-2020-38466

PATIENT
  Sex: Male

DRUGS (3)
  1. IMRALDI [Suspect]
     Active Substance: ADALIMUMAB
     Indication: CROHN^S DISEASE
     Dosage: WEEK ZERO
     Route: 058
     Dates: start: 20200902
  2. IMRALDI [Suspect]
     Active Substance: ADALIMUMAB
     Dosage: WEEK TWO
     Route: 058
  3. IMRALDI [Suspect]
     Active Substance: ADALIMUMAB
     Route: 058

REACTIONS (13)
  - Crohn^s disease [Unknown]
  - Depression [Unknown]
  - Drug ineffective [Unknown]
  - Anxiety [Unknown]
  - Depressed mood [Unknown]
  - Dizziness [Unknown]
  - Seizure [Unknown]
  - Injection site bruising [Unknown]
  - Nausea [Unknown]
  - Injection site pain [Unknown]
  - Crying [Unknown]
  - Agitation [Unknown]
  - Anger [Unknown]
